FAERS Safety Report 9752302 (Version 1)
Quarter: 2013Q4

REPORT INFORMATION
  Report Type: Spontaneous
  Country: US (occurrence: None)
  Receive Date: 20131211
  Receipt Date: 20131211
  Transmission Date: 20140711
  Serious: No
  Sender: FDA-Public Use
  Company Number: None

PATIENT
  Sex: Female

DRUGS (1)
  1. HUMIRA 40MG ABBVIE [Suspect]
     Indication: RHEUMATOID ARTHRITIS
     Dosage: 40MG, EVERY OTHER WEEK , SQ
     Dates: start: 20091002

REACTIONS (1)
  - Thrombosis [None]
